FAERS Safety Report 10209551 (Version 1)
Quarter: 2014Q2

REPORT INFORMATION
  Report Type: Spontaneous
  Country: KR (occurrence: KR)
  Receive Date: 20140602
  Receipt Date: 20140602
  Transmission Date: 20141212
  Serious: Yes (Hospitalization, Other)
  Sender: FDA-Public Use
  Company Number: PHHY2014KR062143

PATIENT
  Age: 55 Year
  Sex: Male

DRUGS (1)
  1. GENTAMICIN [Suspect]
     Indication: LIGAMENT SPRAIN
     Route: 030

REACTIONS (12)
  - Embolia cutis medicamentosa [Recovered/Resolved]
  - Ecchymosis [Recovered/Resolved]
  - Pain [Recovered/Resolved]
  - Erythema [Recovered/Resolved]
  - Purpura [Recovered/Resolved]
  - Haematoma [Recovered/Resolved]
  - Local swelling [Recovered/Resolved]
  - Blood lactate dehydrogenase increased [Recovered/Resolved]
  - Injection site pain [Recovered/Resolved]
  - Skin discolouration [Recovered/Resolved]
  - Bacterial infection [Recovered/Resolved]
  - Pyrexia [Recovered/Resolved]
